FAERS Safety Report 7441624-7 (Version None)
Quarter: 2011Q2

REPORT INFORMATION
  Report Type: 
  Country: None (occurrence: None)
  Receive Date: 20110428
  Receipt Date: 20110426
  Transmission Date: 20111010
  Serious: Yes (Disabling, Other)
  Sender: FDA-Public Use
  Company Number: DE-SANOFI-AVENTIS-2011SA002196

PATIENT
  Age: 40 Year
  Sex: Female
  Weight: 98 kg

DRUGS (1)
  1. CLEXANE [Suspect]
     Indication: THROMBOSIS PROPHYLAXIS
     Route: 058

REACTIONS (6)
  - DYSGEUSIA [None]
  - SENSORY DISTURBANCE [None]
  - FACIAL NERVE DISORDER [None]
  - FACIAL PARESIS [None]
  - HEADACHE [None]
  - HYPERACUSIS [None]
